FAERS Safety Report 7795729-1 (Version None)
Quarter: 2011Q4

REPORT INFORMATION
  Report Type: 
  Country: None (occurrence: None)
  Receive Date: 20111004
  Receipt Date: 20110927
  Transmission Date: 20120403
  Serious: Yes (Hospitalization, Other)
  Sender: FDA-Public Use
  Company Number: TW-ABBOTT-11P-153-0855267-00

PATIENT
  Sex: Female
  Weight: 53 kg

DRUGS (71)
  1. GLIMEPIRIDE [Concomitant]
     Indication: PRODUCT USED FOR UNKNOWN INDICATION
     Route: 048
  2. GLIMEPIRIDE [Concomitant]
     Route: 048
     Dates: start: 20110717
  3. PREDNISOLONE [Concomitant]
     Route: 048
     Dates: start: 20110805
  4. ULTRACET [Concomitant]
     Route: 048
     Dates: start: 20110719, end: 20110729
  5. MEPERIDINE HCL [Concomitant]
     Indication: PRODUCT USED FOR UNKNOWN INDICATION
     Dosage: STAT - 50MG/1ML/AMP
     Route: 030
     Dates: start: 20110719, end: 20110719
  6. GENTAMICIN SULFATE [Concomitant]
     Dosage: 80MG/ML/VIAL
     Route: 042
     Dates: start: 20110721, end: 20110721
  7. CIPROFLOXACIN [Concomitant]
     Indication: PRODUCT USED FOR UNKNOWN INDICATION
     Route: 042
     Dates: start: 20110725, end: 20110729
  8. SULINDAC [Concomitant]
     Indication: PRODUCT USED FOR UNKNOWN INDICATION
     Dosage: STAT
     Route: 048
     Dates: start: 20110726, end: 20110726
  9. LORATADINE AND PSEUDOEPHEDRINE SULFATE [Concomitant]
     Indication: PRODUCT USED FOR UNKNOWN INDICATION
     Dosage: STAT
     Route: 048
     Dates: start: 20110727, end: 20110727
  10. LORATADINE AND PSEUDOEPHEDRINE SULFATE [Concomitant]
     Route: 048
     Dates: start: 20110727, end: 20110728
  11. FOLIC ACID [Concomitant]
     Indication: PRODUCT USED FOR UNKNOWN INDICATION
     Dosage: STAT
     Route: 048
     Dates: start: 20110803, end: 20110803
  12. HUMIRA [Suspect]
     Indication: RHEUMATOID ARTHRITIS
     Route: 058
     Dates: start: 20110421, end: 20110616
  13. FAMOTIDINE [Concomitant]
     Indication: PRODUCT USED FOR UNKNOWN INDICATION
     Route: 048
  14. ASPIRIN [Concomitant]
     Route: 048
     Dates: start: 20110802, end: 20110802
  15. SULFASALAZINE [Concomitant]
     Indication: PRODUCT USED FOR UNKNOWN INDICATION
     Route: 048
  16. RALOXIFENE HCL [Concomitant]
     Indication: PRODUCT USED FOR UNKNOWN INDICATION
     Route: 048
  17. LIDOCAINE HYDROCHLORIDE [Concomitant]
     Indication: PRODUCT USED FOR UNKNOWN INDICATION
     Dates: start: 20110715, end: 20110715
  18. CIMETIDINE [Concomitant]
     Indication: PRODUCT USED FOR UNKNOWN INDICATION
     Route: 048
  19. ULTRACET [Concomitant]
     Dosage: TWICE A DAY AS NEEDED
     Route: 048
     Dates: start: 20110805, end: 20110808
  20. BISOPROLOL FUMARATE [Concomitant]
     Indication: PRODUCT USED FOR UNKNOWN INDICATION
     Route: 048
     Dates: start: 20110802, end: 20110823
  21. LEFLUNOMIDE [Concomitant]
     Route: 048
     Dates: start: 20110324
  22. GLIMEPIRIDE [Concomitant]
     Route: 048
     Dates: start: 20110709, end: 20110717
  23. ACETAMINOPHEN [Concomitant]
     Route: 048
     Dates: start: 20110713, end: 20110713
  24. DEXAMETHASONE [Concomitant]
     Indication: PRODUCT USED FOR UNKNOWN INDICATION
     Dosage: 5GM/TUBE
  25. ULTRACET [Concomitant]
     Dosage: EVERY 6 HOURS AS NEEDED
     Route: 048
     Dates: start: 20110729, end: 20110805
  26. CEFTAZIDIME [Concomitant]
     Indication: PRODUCT USED FOR UNKNOWN INDICATION
     Dosage: STAT - 500MG/VIAL
     Route: 042
     Dates: start: 20110721, end: 20110721
  27. AMIODARONE HCL [Concomitant]
     Indication: PRODUCT USED FOR UNKNOWN INDICATION
     Route: 048
     Dates: start: 20110802
  28. ASPIRIN [Concomitant]
     Indication: PRODUCT USED FOR UNKNOWN INDICATION
     Route: 048
  29. ACETAMINOPHEN [Concomitant]
     Route: 048
     Dates: start: 20110718, end: 20110719
  30. AMLODIPINE [Concomitant]
     Indication: PRODUCT USED FOR UNKNOWN INDICATION
     Route: 048
  31. BROWN MIXTURE [Concomitant]
     Indication: PRODUCT USED FOR UNKNOWN INDICATION
     Route: 048
  32. CEFADROXIL MONOHYDRATE [Concomitant]
     Indication: PRODUCT USED FOR UNKNOWN INDICATION
     Route: 048
  33. MEPERIDINE HCL [Concomitant]
     Dosage: 50MG/1ML/AMP
     Route: 030
     Dates: start: 20110719, end: 20110719
  34. GENTAMICIN SULFATE [Concomitant]
     Dosage: 80MG/ML/VIAL
     Route: 042
     Dates: start: 20110721, end: 20110722
  35. SENNOSIDE A+B CALCIUM [Concomitant]
     Indication: PRODUCT USED FOR UNKNOWN INDICATION
     Dosage: AT HOUR OF SLEEP
     Route: 048
     Dates: start: 20110802
  36. FAMOTIDINE [Concomitant]
     Route: 048
  37. ACARBOSE [Concomitant]
     Route: 048
     Dates: start: 20110708, end: 20110801
  38. PREDNISOLONE [Concomitant]
     Indication: PRODUCT USED FOR UNKNOWN INDICATION
     Route: 048
     Dates: end: 20110728
  39. PREDNISOLONE [Concomitant]
     Route: 048
     Dates: start: 20110803, end: 20110803
  40. ACETAMINOPHEN [Concomitant]
     Route: 048
     Dates: start: 20110808
  41. ACETAMINOPHEN [Concomitant]
     Route: 048
     Dates: start: 20110723
  42. ACETAMINOPHEN [Concomitant]
     Route: 048
     Dates: start: 20110805
  43. CEFAZOLIN SODIUM [Concomitant]
     Indication: PRODUCT USED FOR UNKNOWN INDICATION
     Route: 042
  44. ULTRACET [Concomitant]
     Route: 048
     Dates: start: 20110808
  45. GENTAMICIN SULFATE [Concomitant]
     Dosage: STAT - 80MG/ML/VIAL
     Route: 042
     Dates: start: 20110721, end: 20110721
  46. REGULAR HM INSULIN [Concomitant]
     Indication: PRODUCT USED FOR UNKNOWN INDICATION
     Dosage: STAT - 100IU/ML, 10ML/VIAL
     Route: 058
     Dates: start: 20110721, end: 20110721
  47. REGULAR HM INSULIN [Concomitant]
     Dosage: 100IU/ML, 10ML/VIAL
     Route: 058
     Dates: start: 20110804
  48. ACARBOSE [Concomitant]
     Indication: PRODUCT USED FOR UNKNOWN INDICATION
     Route: 048
     Dates: end: 20110708
  49. PREDNISOLONE [Concomitant]
     Route: 048
     Dates: start: 20110728, end: 20110803
  50. ACETAMINOPHEN [Concomitant]
     Dosage: EVERY 6 HOURS AS NEEDED
     Route: 048
     Dates: start: 20110721, end: 20110808
  51. VALSARTAN [Concomitant]
     Indication: PRODUCT USED FOR UNKNOWN INDICATION
     Route: 048
  52. NITROGLYCERIN [Concomitant]
     Indication: PRODUCT USED FOR UNKNOWN INDICATION
     Route: 060
  53. FLURBIPROFEN [Concomitant]
     Indication: PRODUCT USED FOR UNKNOWN INDICATION
     Dosage: 14CM X 10CM/PATCH
     Route: 061
  54. GLIPIZIDE [Concomitant]
     Indication: PRODUCT USED FOR UNKNOWN INDICATION
     Dosage: IRREGULAR
     Route: 048
     Dates: end: 20110729
  55. ULTRACET [Concomitant]
     Indication: HEADACHE
     Route: 048
     Dates: start: 20110719, end: 20110719
  56. CEFTAZIDIME [Concomitant]
     Dosage: 500MG/VIAL
     Route: 042
     Dates: start: 20110721, end: 20110722
  57. GENTAMICIN SULFATE [Concomitant]
     Indication: PRODUCT USED FOR UNKNOWN INDICATION
     Dosage: STAT - 80MG/ML/VIAL
     Route: 042
     Dates: start: 20110721, end: 20110721
  58. FLUNARIZINE [Concomitant]
     Indication: PRODUCT USED FOR UNKNOWN INDICATION
     Dosage: AT HOUR OF SLEEP
     Route: 048
     Dates: start: 20110722
  59. BISOPROLOL FUMARATE [Concomitant]
     Route: 048
     Dates: start: 20110823
  60. TRIAMCINOLONE IN ORABASE 5 GM/PC [Concomitant]
     Indication: MOUTH ULCERATION
     Dosage: STAT
     Dates: start: 20110802, end: 20110802
  61. FOLIC ACID [Concomitant]
     Route: 048
     Dates: start: 20110803
  62. LEFLUNOMIDE [Concomitant]
     Indication: PRODUCT USED FOR UNKNOWN INDICATION
     Route: 048
  63. ACETAMINOPHEN [Concomitant]
     Indication: PYREXIA
     Dosage: EVERY 6 HOURS AS NEEDED
     Route: 048
     Dates: start: 20110713, end: 20110718
  64. ACETAMINOPHEN [Concomitant]
     Route: 048
     Dates: start: 20110723, end: 20110723
  65. GLIPIZIDE [Concomitant]
     Dosage: IRREGULAR - 1 IN AM; 1 BEFORE LUNCH
     Route: 048
     Dates: start: 20110729
  66. CEFTAZIDIME [Concomitant]
     Dosage: 500MG/VIAL
     Route: 042
     Dates: start: 20110723, end: 20110723
  67. GENTAMICIN SULFATE [Concomitant]
     Dosage: 80MG/ML/VIAL
     Route: 042
     Dates: start: 20110721, end: 20110721
  68. ACETAMINOPHEN [Concomitant]
     Indication: HEADACHE
     Route: 048
     Dates: end: 20110713
  69. HYDROXYCHLOROQUINE SULFATE [Concomitant]
     Indication: PRODUCT USED FOR UNKNOWN INDICATION
     Route: 048
  70. ACETAMINOPHEN 300MG + PHENYLEPHRINE 5MG + ETC [Concomitant]
     Indication: PRODUCT USED FOR UNKNOWN INDICATION
     Route: 048
  71. CEFAZOLIN SODIUM [Concomitant]
     Route: 042
     Dates: start: 20110729

REACTIONS (37)
  - ATRIAL FIBRILLATION [None]
  - MITRAL VALVE INCOMPETENCE [None]
  - BACTERIAL SEPSIS [None]
  - COUGH [None]
  - TRICUSPID VALVE INCOMPETENCE [None]
  - COMA [None]
  - AORTIC CALCIFICATION [None]
  - RHINORRHOEA [None]
  - HYPERTENSION [None]
  - ABDOMINAL PAIN UPPER [None]
  - WEIGHT DECREASED [None]
  - LUNG INFILTRATION [None]
  - BURSITIS [None]
  - HYPOGLYCAEMIA [None]
  - COMPRESSION FRACTURE [None]
  - CONSTIPATION [None]
  - NEPHROLITHIASIS [None]
  - SCOLIOSIS [None]
  - OSTEOPOROSIS [None]
  - INFLUENZA [None]
  - CEREBRAL INFARCTION [None]
  - DISCOMFORT [None]
  - NEURODEGENERATIVE DISORDER [None]
  - DIABETES MELLITUS INADEQUATE CONTROL [None]
  - ANAEMIA [None]
  - PULMONARY HYPERTENSION [None]
  - CARDIOMEGALY [None]
  - TEMPORAL ARTERITIS [None]
  - ARTHRALGIA [None]
  - EXOSTOSIS [None]
  - ARTHROPATHY [None]
  - PYREXIA [None]
  - HEADACHE [None]
  - RHEUMATOID ARTHRITIS [None]
  - SPINAL OSTEOARTHRITIS [None]
  - TENDONITIS [None]
  - BONE LESION [None]
